FAERS Safety Report 6337452-6 (Version None)
Quarter: 2009Q3

REPORT INFORMATION
  Report Type: 
  Country: None (occurrence: None)
  Receive Date: 20090902
  Receipt Date: 20090821
  Transmission Date: 20100115
  Serious: Yes (Other)
  Sender: FDA-Public Use
  Company Number: US-SOLVAY-00209004716

PATIENT
  Age: 786 Month
  Sex: Male
  Weight: 87 kg

DRUGS (1)
  1. ANDROGEL [Suspect]
     Indication: DRUG USE FOR UNKNOWN INDICATION
     Dosage: DAILY DOSE: 5 GRAM(S)
     Route: 062
     Dates: start: 20090401

REACTIONS (6)
  - ACNE [None]
  - DYSPNOEA [None]
  - MYODESOPSIA [None]
  - NECK PAIN [None]
  - RETINAL TEAR [None]
  - WEIGHT INCREASED [None]
